FAERS Safety Report 5445719-9 (Version None)
Quarter: 2007Q3

REPORT INFORMATION
  Report Type: 
  Country: None (occurrence: None)
  Receive Date: 20070904
  Receipt Date: 20070821
  Transmission Date: 20080115
  Serious: Yes (Death)
  Sender: FDA-Public Use
  Company Number: RENA-12245

PATIENT
  Age: 91 Year
  Sex: Male
  Weight: 83.0083 kg

DRUGS (17)
  1. RENAGEL [Suspect]
     Indication: HYPERPHOSPHATAEMIA
     Dosage: 0.8 G TID PO
     Route: 048
     Dates: start: 20050401, end: 20070721
  2. TOPROL-XL [Concomitant]
  3. CARDIZEM [Concomitant]
  4. CELEBREX [Concomitant]
  5. NEPHROCAPS [Concomitant]
  6. FOSRENOL (LANTHANUIM CARBONATE) [Concomitant]
  7. EPO (ERYTHROPOIETIN) [Concomitant]
  8. VENOFER [Concomitant]
  9. COZAAR [Concomitant]
  10. GAS-X PM (SIMETHICONE) [Concomitant]
  11. SENOKOT [Concomitant]
  12. BENEFIBER [Concomitant]
  13. OXYCODONE HCL [Concomitant]
  14. EPOGEN [Concomitant]
  15. O2 (OXYGEN) [Concomitant]
  16. IMODIUM [Concomitant]
  17. ALBUTEROL [Concomitant]

REACTIONS (5)
  - COLITIS ISCHAEMIC [None]
  - CONVULSION [None]
  - HYPOTENSION [None]
  - SEPSIS [None]
  - TACHYCARDIA [None]
